FAERS Safety Report 15893436 (Version 2)
Quarter: 2019Q1

REPORT INFORMATION
  Report Type: Report from Study
  Country: None (occurrence: FI)
  Receive Date: 20190130
  Receipt Date: 20190318
  Transmission Date: 20190417
  Serious: Yes (Hospitalization, Other)
  Sender: FDA-Public Use
  Company Number: FI-ABBVIE-19S-055-2642051-00

PATIENT
  Sex: Female
  Weight: 54 kg

DRUGS (1)
  1. DUODOPA [Suspect]
     Active Substance: CARBIDOPA\LEVODOPA
     Indication: PARKINSON^S DISEASE
     Dosage: 24 H TREATMENT
     Route: 050

REACTIONS (24)
  - Musculoskeletal stiffness [Recovering/Resolving]
  - Asthenia [Unknown]
  - Pneumonia [Unknown]
  - Weight decreased [Not Recovered/Not Resolved]
  - Motor dysfunction [Unknown]
  - Mucous membrane disorder [Unknown]
  - Intervertebral disc protrusion [Recovering/Resolving]
  - On and off phenomenon [Not Recovered/Not Resolved]
  - Somnolence [Unknown]
  - Hyperhidrosis [Unknown]
  - Device issue [Unknown]
  - Dysphagia [Not Recovered/Not Resolved]
  - Wheelchair user [Unknown]
  - Hypoaesthesia [Unknown]
  - Pain in extremity [Unknown]
  - Fatigue [Unknown]
  - Parkinson^s disease [Unknown]
  - Medical device discomfort [Unknown]
  - Weight decreased [Not Recovered/Not Resolved]
  - Motor dysfunction [Not Recovered/Not Resolved]
  - Device physical property issue [Unknown]
  - Muscular weakness [Unknown]
  - Limb discomfort [Unknown]
  - Skin atrophy [Unknown]

NARRATIVE: CASE EVENT DATE: 2015
